FAERS Safety Report 24731849 (Version 1)
Quarter: 2024Q4

REPORT INFORMATION
  Report Type: Spontaneous
  Country: BR (occurrence: BR)
  Receive Date: 20241213
  Receipt Date: 20241213
  Transmission Date: 20250115
  Serious: Yes (Death, Other)
  Sender: GLAXOSMITHKLINE
  Company Number: BR-GSK-BR2024AMR156020

PATIENT

DRUGS (1)
  1. TRELEGY ELLIPTA [Suspect]
     Active Substance: FLUTICASONE FUROATE\UMECLIDINIUM BROMIDE\VILANTEROL TRIFENATATE
     Indication: Product used for unknown indication
     Dosage: 1 DF, BID,100/62.5/25 MCG, EVERY 12 HOURS

REACTIONS (2)
  - Death [Fatal]
  - Extra dose administered [Unknown]
